FAERS Safety Report 9279436 (Version 1)
Quarter: 2013Q2

REPORT INFORMATION
  Report Type: Spontaneous
  Country: US (occurrence: US)
  Receive Date: 20130508
  Receipt Date: 20130508
  Transmission Date: 20140414
  Serious: No
  Sender: FDA-Public Use
  Company Number: US-009507513-1305USA003674

PATIENT
  Sex: Male

DRUGS (1)
  1. CLARITIN [Suspect]
     Indication: NASAL CONGESTION
     Dosage: 10 MG, ONCE
     Route: 048
     Dates: start: 20130423

REACTIONS (2)
  - Drug effect decreased [Unknown]
  - Off label use [Unknown]
